FAERS Safety Report 11704882 (Version 3)
Quarter: 2015Q4

REPORT INFORMATION
  Report Type: Spontaneous
  Country: RU (occurrence: RU)
  Receive Date: 20151106
  Receipt Date: 20151217
  Transmission Date: 20160304
  Serious: Yes (Death, Other)
  Sender: FDA-Public Use
  Company Number: RU-BAYER-2015-459617

PATIENT
  Sex: Male

DRUGS (1)
  1. MAGNEVIST [Suspect]
     Active Substance: GADOPENTETATE DIMEGLUMINE
     Indication: NUCLEAR MAGNETIC RESONANCE IMAGING HEART
     Dosage: 20 ML, ONCE
     Dates: start: 20151102, end: 20151102

REACTIONS (8)
  - Rash [Recovered/Resolved]
  - Erythema [Recovered/Resolved]
  - Asphyxia [Recovered/Resolved]
  - Cardiac arrest [Fatal]
  - Cardiovascular insufficiency [Fatal]
  - Product quality issue [None]
  - Sinus arrhythmia [Fatal]
  - Hypersensitivity [Recovered/Resolved]

NARRATIVE: CASE EVENT DATE: 20151102
